FAERS Safety Report 9522562 (Version 2)
Quarter: 2014Q4

REPORT INFORMATION
  Report Type: Spontaneous
  Country: US (occurrence: US)
  Receive Date: 20130913
  Receipt Date: 20141229
  Transmission Date: 20150529
  Serious: Yes (Hospitalization, Other)
  Sender: FDA-Public Use
  Company Number: US-BAYER-2013-110356

PATIENT
  Age: 43 Year
  Sex: Female

DRUGS (2)
  1. MIRENA [Suspect]
     Active Substance: LEVONORGESTREL
     Indication: CONTRACEPTION
     Dosage: 20 MCG/24HR, CONT
     Route: 015
     Dates: start: 20060622, end: 20090819
  2. DIOVAN [Concomitant]
     Active Substance: VALSARTAN
     Dosage: 25 MG, DAILY, LONG TERM USE

REACTIONS (8)
  - Procedural pain [None]
  - Scar [None]
  - Medical device pain [None]
  - Medical device discomfort [None]
  - Pain [None]
  - Medical device complication [None]
  - Injury [None]
  - Embedded device [None]

NARRATIVE: CASE EVENT DATE: 200908
